FAERS Safety Report 8064871-2 (Version None)
Quarter: 2012Q1

REPORT INFORMATION
  Report Type: 
  Country: None (occurrence: None)
  Receive Date: 20120124
  Receipt Date: 20120112
  Transmission Date: 20120608
  Serious: No
  Sender: FDA-Public Use
  Company Number: US-BIOGENIDEC-2012BI001464

PATIENT
  Age: 55 Year
  Sex: Female

DRUGS (1)
  1. TYSABRI [Suspect]
     Indication: MULTIPLE SCLEROSIS
     Route: 042
     Dates: start: 20120109

REACTIONS (7)
  - HYPERHIDROSIS [None]
  - DISORIENTATION [None]
  - MOBILITY DECREASED [None]
  - NAUSEA [None]
  - MIGRAINE [None]
  - MUSCULOSKELETAL DISORDER [None]
  - HEADACHE [None]
